FAERS Safety Report 9332559 (Version 1)
Quarter: 2013Q2

REPORT INFORMATION
  Report Type: Spontaneous
  Country: ES (occurrence: ES)
  Receive Date: 20130606
  Receipt Date: 20130606
  Transmission Date: 20140414
  Serious: Yes (Other)
  Sender: FDA-Public Use
  Company Number: ES-009507513-1306ESP000844

PATIENT
  Age: 64 Year
  Sex: Male
  Weight: 84.5 kg

DRUGS (1)
  1. EZETROL 10 MG COMPRIMIDOS [Suspect]
     Indication: HYPERCHOLESTEROLAEMIA
     Dosage: 10 MG, QD
     Route: 048
     Dates: start: 20130214, end: 20130422

REACTIONS (1)
  - Raynaud^s phenomenon [Unknown]
